FAERS Safety Report 9411051 (Version 2)
Quarter: 2013Q3

REPORT INFORMATION
  Report Type: Spontaneous
  Country: US (occurrence: US)
  Receive Date: 20130719
  Receipt Date: 20130725
  Transmission Date: 20140515
  Serious: No
  Sender: FDA-Public Use
  Company Number: US-TEVA-420370USA

PATIENT
  Age: 21 Year
  Sex: Female
  Weight: 104.42 kg

DRUGS (5)
  1. PLAN B ONE-STEP [Suspect]
     Indication: POST COITAL CONTRACEPTION
     Dosage: 1.5 MILLIGRAM DAILY;
     Route: 048
     Dates: start: 20130712, end: 20130712
  2. ORTHO TRI CYCLEN [Concomitant]
     Indication: CONTRACEPTION
     Dates: start: 2010
  3. LEXAPRO [Concomitant]
     Indication: DEPRESSION
     Dates: start: 2011
  4. LEXAPRO [Concomitant]
     Indication: ANXIETY
  5. GABAPENTIN [Concomitant]
     Indication: MUSCLE DISORDER
     Dates: start: 2011

REACTIONS (2)
  - Dysmenorrhoea [Not Recovered/Not Resolved]
  - Menstruation irregular [Recovered/Resolved]
